FAERS Safety Report 9840157 (Version 1)
Quarter: 2013Q4

REPORT INFORMATION
  Report Type: Spontaneous
  Country: US (occurrence: None)
  Receive Date: 20131209
  Receipt Date: 20131209
  Transmission Date: 20140711
  Serious: Yes (Other)
  Sender: FDA-Public Use
  Company Number: ALL1-2013-05234

PATIENT
  Age: 12 Year
  Sex: Male

DRUGS (1)
  1. ADDERALL XR [Suspect]
     Indication: PRODUCT USED FOR UNKNOWN INDICATION
     Route: 048
     Dates: start: 20130515

REACTIONS (6)
  - Hallucination [None]
  - Diabetes mellitus inadequate control [None]
  - Headache [None]
  - Nausea [None]
  - Decreased appetite [None]
  - Hallucinations, mixed [None]
